FAERS Safety Report 21925977 (Version 2)
Quarter: 2023Q1

REPORT INFORMATION
  Report Type: Spontaneous
  Country: GR (occurrence: GR)
  Receive Date: 20230130
  Receipt Date: 20230207
  Transmission Date: 20230418
  Serious: Yes (Death, Life-Threatening, Other)
  Sender: FDA-Public Use
  Company Number: GR-MYLANLABS-2023M1009658

PATIENT
  Age: 68 Year
  Sex: Female

DRUGS (1)
  1. SOTALOL [Suspect]
     Active Substance: SOTALOL
     Indication: Product used for unknown indication
     Dosage: 80 MILLIGRAM, BID
     Route: 065

REACTIONS (4)
  - Ventricular fibrillation [Fatal]
  - Torsade de pointes [Not Recovered/Not Resolved]
  - Syncope [Not Recovered/Not Resolved]
  - Palpitations [Not Recovered/Not Resolved]
